FAERS Safety Report 25763179 (Version 1)
Quarter: 2025Q3

REPORT INFORMATION
  Report Type: Spontaneous
  Country: EU (occurrence: EU)
  Receive Date: 20250905
  Receipt Date: 20250905
  Transmission Date: 20251021
  Serious: Yes (Other)
  Sender: ABBVIE
  Company Number: EU-SANDOZ-SDZ2025SK062907

PATIENT
  Age: 53 Year
  Sex: Female

DRUGS (4)
  1. ADALIMUMAB [Suspect]
     Active Substance: ADALIMUMAB
     Indication: Psoriatic arthropathy
     Dosage: 40 MG EVERY 14 DAYS, START DATE: 02-MAR-2020; STOP DATE AN-2021
     Route: 058
     Dates: start: 20200302, end: 2021
  2. METHOTREXATE [Suspect]
     Active Substance: METHOTREXATE
     Indication: Psoriatic arthropathy
     Route: 065
  3. METHOTREXATE [Suspect]
     Active Substance: METHOTREXATE
     Indication: Psoriatic arthropathy
     Route: 065
  4. METHOTREXATE [Suspect]
     Active Substance: METHOTREXATE
     Indication: Psoriatic arthropathy
     Route: 065
     Dates: start: 20211201, end: 20220105

REACTIONS (5)
  - Hepatic enzyme increased [Unknown]
  - Headache [Unknown]
  - Alopecia [Unknown]
  - Rash papular [Unknown]
  - Drug intolerance [Unknown]

NARRATIVE: CASE EVENT DATE: 19970101
